FAERS Safety Report 9958898 (Version 1)
Quarter: 2014Q1

REPORT INFORMATION
  Report Type: Report from Study
  Country: US (occurrence: US)
  Receive Date: 20140305
  Receipt Date: 20140305
  Transmission Date: 20141002
  Serious: No
  Sender: FDA-Public Use
  Company Number: US-ABBVIE-13P-163-1103374-00

PATIENT
  Age: 53 Year
  Sex: Female
  Weight: 74.91 kg

DRUGS (5)
  1. HUMIRA [Suspect]
     Indication: PSORIASIS
     Dates: start: 201305, end: 201305
  2. HUMIRA [Suspect]
     Dosage: ONE WEEK AFTER 80 MG DOSE
     Dates: start: 201305
  3. ALLEGRA D [Concomitant]
     Indication: HYPERSENSITIVITY
  4. JINTELI [Concomitant]
     Indication: HORMONE REPLACEMENT THERAPY
  5. VITAMINS [Concomitant]
     Indication: VITAMIN SUPPLEMENTATION

REACTIONS (5)
  - Joint swelling [Not Recovered/Not Resolved]
  - Feeling hot [Not Recovered/Not Resolved]
  - Erythema [Not Recovered/Not Resolved]
  - Ecchymosis [Not Recovered/Not Resolved]
  - Rash [Not Recovered/Not Resolved]
